FAERS Safety Report 8904122 (Version 1)
Quarter: 2012Q4

REPORT INFORMATION
  Report Type: 
  Country: ES (occurrence: ES)
  Receive Date: 20121112
  Receipt Date: 20121112
  Transmission Date: 20130627
  Serious: Yes (Disabling)
  Sender: FDA-Public Use
  Company Number: ES-CELGENEUS-144-21880-12100650

PATIENT
  Age: 50 Year
  Sex: Male

DRUGS (15)
  1. REVLIMID [Suspect]
     Indication: MULTIPLE MYELOMA
     Dosage: 25 Milligram
     Route: 048
     Dates: start: 20120821
  2. REVLIMID [Suspect]
     Dosage: 15 Milligram
     Route: 048
     Dates: start: 20120921, end: 20121002
  3. DEXAMETHASONE [Suspect]
     Indication: MULTIPLE MYELOMA
     Route: 065
     Dates: start: 201208
  4. PANTOPRAZOL [Concomitant]
     Indication: EPIGASTRALGIA
     Dosage: 40 Gram
     Route: 065
  5. TRAMADOL HYDROCHLORIDE [Concomitant]
     Indication: PAIN
     Dosage: 200 Gram
     Route: 065
  6. ZYLORIC [Concomitant]
     Indication: GOUTY ARTHRITIS
     Dosage: 300 Gram
     Route: 065
  7. ESCITALOPRAM [Concomitant]
     Indication: ANXIETY
     Dosage: 20 Gram
     Route: 065
  8. CLOMIPRAMINE HYDROCHLORIDE [Concomitant]
     Indication: ANXIETY
     Dosage: 25 Gram
     Route: 065
  9. AMLODIPINE W/TELMISARTAN [Concomitant]
     Indication: HYPERTENSION ARTERIAL
     Dosage: 160 Gram
     Route: 065
  10. HALAZEPAM [Concomitant]
     Indication: ANXIETY
     Route: 065
  11. METFORMIN HYDROCHLORIDE [Concomitant]
     Indication: DIABETES MELLITUS
     Dosage: 1700
     Route: 065
  12. RAMIPRIL [Concomitant]
     Indication: HYPERTENSION ARTERIAL
     Dosage: 20 Gram
     Route: 065
  13. QUIEDORM [Concomitant]
     Indication: ANXIETY
     Route: 065
  14. CANDESARTAN CILEXETIL [Concomitant]
     Indication: HYPERTENSION ARTERIAL
     Route: 065
  15. LOPID [Concomitant]
     Indication: DYSLIPIDAEMIA
     Route: 065

REACTIONS (4)
  - Pain [Recovered/Resolved]
  - Muscle spasms [Recovered/Resolved]
  - Asthenia [Recovered/Resolved]
  - Pain [Recovered/Resolved]
